FAERS Safety Report 21380442 (Version 1)
Quarter: 2022Q3

REPORT INFORMATION
  Report Type: Spontaneous
  Country: AU (occurrence: AU)
  Receive Date: 20220927
  Receipt Date: 20220927
  Transmission Date: 20221027
  Serious: Yes (Hospitalization)
  Sender: FDA-Public Use
  Company Number: AU-MYLANLABS-2022M1096335

PATIENT
  Age: 6 Decade
  Sex: Male

DRUGS (1)
  1. WARFARIN [Suspect]
     Active Substance: WARFARIN
     Indication: Factor V Leiden mutation
     Dosage: 10 MILLIGRAM, QD
     Route: 065

REACTIONS (7)
  - Retroperitoneal haematoma [Recovering/Resolving]
  - Testicular infarction [Recovered/Resolved]
  - Vascular compression [Recovered/Resolved]
  - Venous thrombosis [Recovered/Resolved]
  - Pain [Recovered/Resolved]
  - Haemoglobin decreased [Recovering/Resolving]
  - Off label use [Unknown]
